FAERS Safety Report 11253206 (Version 1)
Quarter: 2015Q3

REPORT INFORMATION
  Report Type: Spontaneous
  Country: FR (occurrence: None)
  Receive Date: 20150707
  Receipt Date: 20150707
  Transmission Date: 20151125
  Serious: Yes (Other)
  Sender: FDA-Public Use
  Company Number: BTG00274

PATIENT
  Age: 9 Year
  Sex: Female
  Weight: 34 kg

DRUGS (5)
  1. FOLINIC ACID (CALCIUM FOLINATE) [Concomitant]
  2. VORAXAZE [Suspect]
     Active Substance: GLUCARPIDASE
     Indication: HEPATOCELLULAR INJURY
  3. METHOTREXATE [Concomitant]
     Active Substance: METHOTREXATE
  4. IMATINIB (IMATINIB MESILATE) [Concomitant]
     Active Substance: IMATINIB
  5. VORAXAZE [Suspect]
     Active Substance: GLUCARPIDASE
     Indication: ACUTE KIDNEY INJURY

REACTIONS (1)
  - Drug effect incomplete [None]
